FAERS Safety Report 6772308-6 (Version None)
Quarter: 2010Q2

REPORT INFORMATION
  Report Type: 
  Country: None (occurrence: None)
  Receive Date: 20100616
  Receipt Date: 20100105
  Transmission Date: 20101027
  Serious: No
  Sender: FDA-Public Use
  Company Number: US-ASTRAZENECA-2010SE00385

PATIENT
  Age: 52 Year
  Sex: Female
  Weight: 72.6 kg

DRUGS (3)
  1. PULMICORT RESPULES [Suspect]
     Dosage: 1 MG/ML DAILY
     Route: 055
  2. ALBUTEROL [Concomitant]
  3. XOPENOX [Concomitant]

REACTIONS (1)
  - PALPITATIONS [None]
